FAERS Safety Report 11538623 (Version 1)
Quarter: 2015Q3

REPORT INFORMATION
  Report Type: Spontaneous
  Country: US (occurrence: None)
  Receive Date: 20150921
  Receipt Date: 20150921
  Transmission Date: 20151125
  Serious: Yes (Hospitalization)
  Sender: FDA-Public Use
  Company Number: ADVERSE EVENT #662767

PATIENT
  Age: 81 Year
  Sex: Female
  Weight: 73.94 kg

DRUGS (1)
  1. EQUATE DOCUSATE SODIUM STOOL SOFTENER 100 MG 280 CT [Suspect]
     Active Substance: DOCUSATE SODIUM

REACTIONS (7)
  - Throat irritation [None]
  - Choking [None]
  - Inflammation [None]
  - Exposure via inhalation [None]
  - Dyspnoea [None]
  - Cough [None]
  - Malaise [None]

NARRATIVE: CASE EVENT DATE: 20150829
